FAERS Safety Report 15310184 (Version 1)
Quarter: 2018Q3

REPORT INFORMATION
  Report Type: Spontaneous
  Country: US (occurrence: US)
  Receive Date: 20180813
  Receipt Date: 20180813
  Transmission Date: 20181010
  Serious: No
  Sender: FDA-Public Use
  Company Number: None

PATIENT
  Age: 66 Year
  Sex: Male

DRUGS (1)
  1. ORTHOVISC [Suspect]
     Active Substance: HYALURONIC ACID
     Dates: start: 20180812, end: 20180813

REACTIONS (3)
  - Hypertension [None]
  - Glossodynia [None]
  - Limb discomfort [None]

NARRATIVE: CASE EVENT DATE: 20180813
